FAERS Safety Report 22019654 (Version 9)
Quarter: 2023Q4

REPORT INFORMATION
  Report Type: Report from Study
  Country: CO (occurrence: CO)
  Receive Date: 20230222
  Receipt Date: 20231226
  Transmission Date: 20240109
  Serious: Yes (Hospitalization, Other)
  Sender: FDA-Public Use
  Company Number: CO-002147023-NVSC2022CO196717

PATIENT
  Sex: Female
  Weight: 73 kg

DRUGS (2)
  1. GILENYA [Suspect]
     Active Substance: FINGOLIMOD HYDROCHLORIDE
     Indication: Multiple sclerosis
     Dosage: 0.5 MG, QD, BY MOUTH
     Route: 048
  2. GILENYA [Suspect]
     Active Substance: FINGOLIMOD HYDROCHLORIDE
     Dosage: 0.5 MG, QD, BY MOUTH
     Route: 048
     Dates: start: 20211201

REACTIONS (12)
  - Illness [Unknown]
  - Mobility decreased [Unknown]
  - Paralysis [Unknown]
  - Gait disturbance [Unknown]
  - Respiratory disorder [Unknown]
  - Spinal disorder [Unknown]
  - Refraction disorder [Unknown]
  - Bronchitis chronic [Unknown]
  - Mental disorder [Unknown]
  - Gait inability [Unknown]
  - Product dispensing issue [Unknown]
  - Product dose omission issue [Unknown]

NARRATIVE: CASE EVENT DATE: 20200101
